FAERS Safety Report 4336416-1 (Version None)
Quarter: 2004Q2

REPORT INFORMATION
  Report Type: 
  Country: None (occurrence: None)
  Receive Date: 20040412
  Receipt Date: 20040406
  Transmission Date: 20050107
  Serious: Yes (Death)
  Sender: FDA-Public Use
  Company Number: PHHO2004CA05254

PATIENT
  Age: 79 Year
  Sex: Female
  Weight: 61 kg

DRUGS (2)
  1. EXELON [Suspect]
     Indication: DEMENTIA ALZHEIMER'S TYPE
     Dosage: 1.5 MG, BID
     Route: 048
     Dates: start: 20040310
  2. FOSAMAX [Concomitant]
     Indication: BLOOD PRESSURE

REACTIONS (2)
  - CARDIAC DEATH [None]
  - CONCOMITANT DISEASE PROGRESSION [None]
